FAERS Safety Report 25357557 (Version 1)
Quarter: 2025Q2

REPORT INFORMATION
  Report Type: Report from Study
  Country: US (occurrence: US)
  Receive Date: 20250526
  Receipt Date: 20250526
  Transmission Date: 20250717
  Serious: Yes (Hospitalization)
  Sender: ABBVIE
  Company Number: US-ABBVIE-6293407

PATIENT
  Age: 49 Year
  Sex: Female

DRUGS (2)
  1. VENCLEXTA [Suspect]
     Active Substance: VENETOCLAX
     Indication: Acute myeloid leukaemia
     Dosage: MISSED 2 DOSES
     Route: 048
     Dates: start: 202505, end: 202505
  2. VENCLEXTA [Suspect]
     Active Substance: VENETOCLAX
     Indication: Acute myeloid leukaemia
     Route: 048
     Dates: start: 202505

REACTIONS (5)
  - Device related sepsis [Unknown]
  - Central venous catheterisation [Unknown]
  - Pyrexia [Unknown]
  - White blood cell count decreased [Unknown]
  - Anger [Unknown]

NARRATIVE: CASE EVENT DATE: 20250501
